FAERS Safety Report 6495124-1 (Version None)
Quarter: 2009Q4

REPORT INFORMATION
  Report Type: 
  Country: None (occurrence: None)
  Receive Date: 20091214
  Receipt Date: 20090505
  Transmission Date: 20100525
  Serious: No
  Sender: FDA-Public Use
  Company Number: US-BRISTOL-MYERS SQUIBB COMPANY-14611354

PATIENT
  Age: 10 Year
  Sex: Female
  Weight: 33 kg

DRUGS (4)
  1. ABILIFY [Suspect]
     Indication: ATTENTION DEFICIT/HYPERACTIVITY DISORDER
     Dates: start: 20090201
  2. ADDERALL XR 10 [Concomitant]
  3. ZOLOFT [Concomitant]
  4. TRAZODONE HCL [Concomitant]

REACTIONS (3)
  - ABNORMAL BEHAVIOUR [None]
  - SOMNOLENCE [None]
  - TREMOR [None]
